FAERS Safety Report 16152337 (Version 1)
Quarter: 2019Q2

REPORT INFORMATION
  Report Type: Spontaneous
  Country: US (occurrence: US)
  Receive Date: 20190403
  Receipt Date: 20190403
  Transmission Date: 20190711
  Serious: Yes (Other)
  Sender: FDA-Public Use
  Company Number: US-GLAXOSMITHKLINE-US2019057246

PATIENT
  Age: 42 Year
  Sex: Female

DRUGS (1)
  1. EXCEDRIN MIGRAINE [Suspect]
     Active Substance: ACETAMINOPHEN\ASPIRIN\CAFFEINE
     Indication: HEADACHE
     Dosage: 2 UNK, QID (8 PILLS A DAY YEARS)
     Route: 048

REACTIONS (7)
  - Drug dependence [Not Recovered/Not Resolved]
  - Drug withdrawal headache [Not Recovered/Not Resolved]
  - Drug ineffective for unapproved indication [Unknown]
  - Incorrect product administration duration [Unknown]
  - Overdose [Unknown]
  - Drug tolerance [Unknown]
  - Product use in unapproved indication [Unknown]
